FAERS Safety Report 11545863 (Version 1)
Quarter: 2015Q3

REPORT INFORMATION
  Report Type: Spontaneous
  Country: CN (occurrence: CN)
  Receive Date: 20150924
  Receipt Date: 20150924
  Transmission Date: 20151125
  Serious: Yes (Hospitalization, Other)
  Sender: FDA-Public Use
  Company Number: CN-GLAXOSMITHKLINE-CN2015GSK132741

PATIENT
  Age: 24 Year
  Sex: Female

DRUGS (6)
  1. LAMICTAL [Suspect]
     Active Substance: LAMOTRIGINE
     Indication: EPILEPSY
     Dosage: 25 MG, QD
     Route: 048
  2. CITICOLINE [Concomitant]
     Active Substance: CITICOLINE
  3. LAMICTAL [Suspect]
     Active Substance: LAMOTRIGINE
     Dosage: 50 MG, QD
     Route: 048
  4. SHENSONG YANGXIN CAPSULE [Concomitant]
  5. XINGNAOJING [Concomitant]
  6. LAMICTAL [Suspect]
     Active Substance: LAMOTRIGINE
     Dosage: 75 MG, QD
     Route: 048

REACTIONS (24)
  - Flushing [Recovering/Resolving]
  - Pruritus [Recovering/Resolving]
  - Oropharyngeal pain [Unknown]
  - Conjunctival hyperaemia [Unknown]
  - Photophobia [Unknown]
  - Epidermolysis bullosa [Recovering/Resolving]
  - Rash [Recovering/Resolving]
  - Face oedema [Unknown]
  - Lip swelling [Unknown]
  - Pain of skin [Unknown]
  - Skin exfoliation [Unknown]
  - Conjunctival ulcer [Unknown]
  - Erythema [Recovering/Resolving]
  - Condition aggravated [Unknown]
  - Mental impairment [Unknown]
  - Asthenia [Unknown]
  - Hepatic function abnormal [Unknown]
  - Lacrimation increased [Unknown]
  - Eating disorder [Unknown]
  - Rales [Unknown]
  - Oedema [Unknown]
  - Nikolsky^s sign [Unknown]
  - Scab [Unknown]
  - Rash macular [Unknown]
